FAERS Safety Report 10640195 (Version 5)
Quarter: 2015Q1

REPORT INFORMATION
  Report Type: Spontaneous
  Country: BR (occurrence: BR)
  Receive Date: 20141209
  Receipt Date: 20150310
  Transmission Date: 20150720
  Serious: Yes (Other)
  Sender: FDA-Public Use
  Company Number: BR-ASTRAZENECA-2014SE94139

PATIENT
  Age: 68 Year
  Sex: Female
  Weight: 52 kg

DRUGS (14)
  1. ONGLYZA [Suspect]
     Active Substance: SAXAGLIPTIN HYDROCHLORIDE
     Indication: DIABETES MELLITUS
     Route: 048
  2. ALPRAZOLAM. [Concomitant]
     Active Substance: ALPRAZOLAM
  3. TREZOR [Suspect]
     Active Substance: ROSUVASTATIN CALCIUM
     Indication: BLOOD CHOLESTEROL INCREASED
     Dosage: DAILY
     Route: 048
  4. ONGLYZA [Suspect]
     Active Substance: SAXAGLIPTIN HYDROCHLORIDE
     Indication: DIABETES MELLITUS
     Route: 048
     Dates: start: 201410, end: 201412
  5. JANUVIA [Suspect]
     Active Substance: SITAGLIPTIN PHOSPHATE
     Indication: DIABETES MELLITUS
     Route: 048
     Dates: end: 201410
  6. CODEINE [Concomitant]
     Active Substance: CODEINE
  7. NAPRIX [Concomitant]
     Active Substance: RAMIPRIL
     Indication: HYPERTENSION
  8. CHEMOTHERAPY [Suspect]
     Active Substance: UNSPECIFIED INGREDIENT
     Indication: LUNG NEOPLASM MALIGNANT
     Route: 065
     Dates: start: 201407, end: 201410
  9. CLOPIDOGREL [Concomitant]
     Active Substance: CLOPIDOGREL BISULFATE
     Indication: CARDIAC DISORDER
  10. RADIOTHERAPY [Suspect]
     Active Substance: RADIATION THERAPY
     Indication: LUNG NEOPLASM MALIGNANT
     Route: 065
     Dates: start: 201412, end: 20150116
  11. RADIOTHERAPY [Suspect]
     Active Substance: RADIATION THERAPY
     Indication: LUNG NEOPLASM MALIGNANT
     Route: 065
  12. DIAMICRON MR [Concomitant]
     Active Substance: GLICLAZIDE
     Indication: DIABETES MELLITUS
  13. VASTAREL [Concomitant]
     Active Substance: TRIMETAZIDINE DIHYDROCHLORIDE
     Indication: CARDIAC DISORDER
     Dosage: TWO TIMES A DAY
  14. RITMONORM [Concomitant]
     Active Substance: PROPAFENONE HYDROCHLORIDE
     Indication: CARDIAC DISORDER
     Dosage: THREE TIMES A DAY

REACTIONS (8)
  - Lung neoplasm [Unknown]
  - Diarrhoea [Unknown]
  - Oesophageal injury [Unknown]
  - Radiation skin injury [Unknown]
  - Alopecia [Unknown]
  - Mouth injury [Unknown]
  - Vomiting [Unknown]
  - Hyperglycaemia [Recovered/Resolved]

NARRATIVE: CASE EVENT DATE: 2014
